FAERS Safety Report 25821709 (Version 3)
Quarter: 2025Q4

REPORT INFORMATION
  Report Type: Report from Study
  Country: US (occurrence: US)
  Receive Date: 20250919
  Receipt Date: 20251024
  Transmission Date: 20260117
  Serious: Yes (Other)
  Sender: AIMMUNE
  Company Number: US-ZENPEP LLC-2025AIMT00886

PATIENT

DRUGS (2)
  1. ZENPEP [Suspect]
     Active Substance: PANCRELIPASE AMYLASE\PANCRELIPASE LIPASE\PANCRELIPASE PROTEASE
     Indication: Pancreatic failure
     Dosage: 60,000 USP CAPSULES, 100 CT
     Route: 048
     Dates: start: 2024
  2. ZENPEP [Suspect]
     Active Substance: PANCRELIPASE AMYLASE\PANCRELIPASE LIPASE\PANCRELIPASE PROTEASE
     Dosage: 60,000 USP CAPSULES, ONCE, LAST DOSE PRIOR TO EVENT
     Route: 048

REACTIONS (3)
  - Diabetes mellitus [Unknown]
  - Neuropathy peripheral [Unknown]
  - Gastrointestinal disorder [Unknown]
